FAERS Safety Report 9783104 (Version 1)
Quarter: 2013Q4

REPORT INFORMATION
  Report Type: Spontaneous
  Country: US (occurrence: US)
  Receive Date: 20131226
  Receipt Date: 20131226
  Transmission Date: 20140711
  Serious: Yes (Other)
  Sender: FDA-Public Use
  Company Number: US-TEVA-452853USA

PATIENT
  Sex: Female

DRUGS (2)
  1. ONDANSETRON [Suspect]
     Indication: NAUSEA
  2. ONDANSETRON [Suspect]
     Indication: VOMITING

REACTIONS (3)
  - Aphagia [Unknown]
  - Weight decreased [Unknown]
  - Drug ineffective [Unknown]
